FAERS Safety Report 8834296 (Version 1)
Quarter: 2012Q4

REPORT INFORMATION
  Report Type: 
  Country: US (occurrence: US)
  Receive Date: 20121010
  Receipt Date: 20121010
  Transmission Date: 20130627
  Serious: Yes (Death)
  Sender: FDA-Public Use
  Company Number: US-ARROW-2012-16965

PATIENT
  Age: 46 Year
  Sex: Female

DRUGS (5)
  1. LISINOPRIL [Suspect]
     Indication: PRODUCT USED FOR UNKNOWN INDICATION
     Dosage: 40 mg X1
  2. KALBITOR [Suspect]
     Indication: HEREDITARY ANGIOEDEMA
     Dosage: 30mg x1
     Route: 058
     Dates: start: 20120609, end: 20120609
  3. KALBITOR [Suspect]
     Dosage: 30 mg X1
     Route: 058
     Dates: start: 20120530, end: 20120530
  4. CLONAZEPAM [Concomitant]
     Indication: PRODUCT USED FOR UNKNOWN INDICATION
     Dosage: UNK
  5. CINRYZE [Concomitant]
     Indication: PRODUCT USED FOR UNKNOWN INDICATION
     Dosage: UNK

REACTIONS (2)
  - Accidental overdose [Fatal]
  - Cardiac disorder [Fatal]
